FAERS Safety Report 24054119 (Version 1)
Quarter: 2024Q3

REPORT INFORMATION
  Report Type: Spontaneous
  Country: US (occurrence: US)
  Receive Date: 20240705
  Receipt Date: 20240705
  Transmission Date: 20241016
  Serious: Yes (Death, Life-Threatening, Hospitalization, Other)
  Sender: Unknown Manufacturer
  Company Number: US-862174955-ML2024-03714

PATIENT
  Age: 27 Year
  Sex: Female

DRUGS (3)
  1. DIPHENHYDRAMINE [Suspect]
     Active Substance: DIPHENHYDRAMINE
     Indication: Product used for unknown indication
  2. AMLODIPINE [Suspect]
     Active Substance: AMLODIPINE BESYLATE
     Indication: Product used for unknown indication
  3. CARVEDILOL [Suspect]
     Active Substance: CARVEDILOL
     Indication: Product used for unknown indication

REACTIONS (9)
  - Toxicity to various agents [Fatal]
  - Bradycardia [Fatal]
  - Shock [Fatal]
  - Hypoxia [Fatal]
  - Leukocytosis [Fatal]
  - Lung infiltration [Fatal]
  - Aspiration [Fatal]
  - Hypotension [Fatal]
  - Intentional overdose [Fatal]
